FAERS Safety Report 5017573-0 (Version None)
Quarter: 2006Q2

REPORT INFORMATION
  Report Type: 
  Country: None (occurrence: None)
  Receive Date: 20060601
  Receipt Date: 20060601
  Transmission Date: 20061013
  Serious: No
  Sender: FDA-Public Use
  Company Number: None

PATIENT
  Age: 55 Year
  Sex: Female

DRUGS (15)
  1. XYREM [Suspect]
  2. ASPIRIN,BUTALBITAL,CAFFEINE [Concomitant]
  3. MORPHINE [Concomitant]
  4. CLONAZEPAM [Concomitant]
  5. MONTELUKAST [Concomitant]
  6. PANTOPRAZOLE [Concomitant]
  7. LEVOTHYROXINE SODIUM [Concomitant]
  8. MAGNESIUM OXIDE [Concomitant]
  9. MULTI-VITAMIN [Concomitant]
  10. VITAMIN E [Concomitant]
  11. ALBUTEROL SULFATE AND IPRATROPIUM BROMIDE [Concomitant]
  12. FEXOFENADINE [Concomitant]
  13. RANITIDINE [Concomitant]
  14. CALCIUM GLUCONATE [Concomitant]
  15. OXYCODONE HCL [Concomitant]

REACTIONS (3)
  - HALLUCINATION, AUDITORY [None]
  - PARANOIA [None]
  - TREATMENT NONCOMPLIANCE [None]
